FAERS Safety Report 10080984 (Version 2)
Quarter: 2014Q2

REPORT INFORMATION
  Report Type: Spontaneous
  Country: FR (occurrence: FR)
  Receive Date: 20140416
  Receipt Date: 20140528
  Transmission Date: 20141212
  Serious: Yes (Hospitalization)
  Sender: FDA-Public Use
  Company Number: FR-B.I. PHARMACEUTICALS,INC./RIDGEFIELD-2014-BI-16643FF

PATIENT
  Age: 88 Year
  Sex: Female

DRUGS (2)
  1. XARELTO [Suspect]
     Indication: ATRIAL FIBRILLATION
     Route: 065
     Dates: start: 2013
  2. AMIODARONE [Concomitant]
     Route: 065

REACTIONS (3)
  - Leukopenia [Unknown]
  - Anaemia [Unknown]
  - Haematoma [Unknown]
